FAERS Safety Report 7560470-7 (Version None)
Quarter: 2011Q2

REPORT INFORMATION
  Report Type: 
  Country: None (occurrence: None)
  Receive Date: 20110621
  Receipt Date: 20110610
  Transmission Date: 20111010
  Serious: Yes (Hospitalization)
  Sender: FDA-Public Use
  Company Number: AU-JNJFOC-20110308845

PATIENT
  Sex: Male
  Weight: 71 kg

DRUGS (12)
  1. RISPERIDONE [Concomitant]
     Indication: PSYCHOTIC DISORDER
     Dates: start: 20101229
  2. FLUTICASONE PROPIONATE [Concomitant]
     Indication: WHEEZING
     Dates: start: 20100105
  3. PALIPERIDONE [Suspect]
     Route: 030
     Dates: start: 20110218, end: 20110218
  4. TIOTROPIUM [Concomitant]
     Indication: WHEEZING
     Dates: start: 20100105
  5. PALIPERIDONE [Suspect]
     Route: 030
     Dates: start: 20110124, end: 20110124
  6. SALMETEROL [Concomitant]
     Indication: WHEEZING
     Dates: start: 20100105
  7. LORAZEPAM [Concomitant]
     Indication: AGITATION
     Dates: start: 20100105
  8. PALIPERIDONE [Suspect]
     Route: 030
     Dates: start: 20101006, end: 20101006
  9. PALIPERIDONE [Suspect]
     Route: 030
     Dates: start: 20101201, end: 20101201
  10. PALIPERIDONE [Suspect]
     Route: 030
     Dates: start: 20101229, end: 20101229
  11. PALIPERIDONE [Suspect]
     Indication: SCHIZOPHRENIA
     Route: 030
     Dates: start: 20100929, end: 20100929
  12. PALIPERIDONE [Suspect]
     Route: 030
     Dates: start: 20101103, end: 20101103

REACTIONS (1)
  - PSYCHOTIC DISORDER [None]
